FAERS Safety Report 7812758-X (Version None)
Quarter: 2011Q4

REPORT INFORMATION
  Report Type: 
  Country: None (occurrence: None)
  Receive Date: 20111011
  Receipt Date: 20110927
  Transmission Date: 20120403
  Serious: Yes (Other)
  Sender: FDA-Public Use
  Company Number: DSA_47746_2011

PATIENT
  Sex: Female

DRUGS (2)
  1. WELLBUTRIN XL [Suspect]
     Indication: MAJOR DEPRESSION
     Dosage: (150 MG QD ORAL, (150 MG QD ORAL)
     Route: 048
  2. WELLBUTRIN SR [Concomitant]

REACTIONS (1)
  - HALLUCINATION, AUDITORY [None]
